FAERS Safety Report 20679889 (Version 1)
Quarter: 2022Q2

REPORT INFORMATION
  Report Type: Spontaneous
  Country: EG (occurrence: EG)
  Receive Date: 20220406
  Receipt Date: 20220406
  Transmission Date: 20220721
  Serious: Yes (Other)
  Sender: FDA-Public Use
  Company Number: EG-PFIZER INC-202200477160

PATIENT
  Age: 61 Year
  Sex: Female

DRUGS (1)
  1. IBRANCE [Suspect]
     Active Substance: PALBOCICLIB
     Indication: Breast cancer
     Dosage: 125 MG, CYCLIC : ONCE DAILY TAKEN WITH FOOD 21 DAY ON AND 7 DAYS OFF
     Route: 048
     Dates: start: 20220129

REACTIONS (1)
  - Pulmonary fibrosis [Unknown]
